FAERS Safety Report 12523027 (Version 3)
Quarter: 2016Q3

REPORT INFORMATION
  Report Type: Spontaneous
  Country: AT (occurrence: AT)
  Receive Date: 20160701
  Receipt Date: 20160808
  Transmission Date: 20161109
  Serious: Yes (Other)
  Sender: FDA-Public Use
  Company Number: AT-TEVA-671551ISR

PATIENT
  Age: 69 Year
  Sex: Male

DRUGS (4)
  1. PANTOPRAZOLE [Suspect]
     Active Substance: PANTOPRAZOLE SODIUM
     Dosage: 40 MILLIGRAM DAILY; ONE IN THE MORNING
  2. ATAZANAVIR/RITONAVIR [Interacting]
     Active Substance: ATAZANAVIR\RITONAVIR
     Indication: HIV INFECTION
     Route: 065
  3. TENOFOVIR/EMTRICITABIN [Interacting]
     Active Substance: EMTRICITABINE\TENOFOVIR DISOPROXIL FUMARATE
     Indication: HIV INFECTION
     Route: 065
  4. ST. JOHN^S WORT EXTRACT [Interacting]
     Active Substance: ST. JOHN^S WORT
     Indication: DEPRESSION
     Route: 065

REACTIONS (2)
  - Drug interaction [Recovered/Resolved]
  - Blood HIV RNA increased [Recovered/Resolved]
